FAERS Safety Report 16674669 (Version 1)
Quarter: 2019Q3

REPORT INFORMATION
  Report Type: Spontaneous
  Country: DE (occurrence: DE)
  Receive Date: 20190806
  Receipt Date: 20190806
  Transmission Date: 20191004
  Serious: Yes (Other)
  Sender: FDA-Public Use
  Company Number: DE-ASTRAZENECA-2019SF09909

PATIENT
  Age: 82 Year
  Sex: Female

DRUGS (2)
  1. TAMOXIFEN [Suspect]
     Active Substance: TAMOXIFEN
     Indication: BREAST CANCER
     Route: 048
     Dates: start: 2010, end: 201711
  2. FASLODEX [Suspect]
     Active Substance: FULVESTRANT
     Indication: BREAST CANCER
     Route: 030
     Dates: start: 201711

REACTIONS (5)
  - Tumour marker abnormal [Unknown]
  - Lymphadenopathy [Unknown]
  - Alopecia [Unknown]
  - Intervertebral disc protrusion [Unknown]
  - Metastasis [Unknown]
